FAERS Safety Report 23791418 (Version 1)
Quarter: 2024Q2

REPORT INFORMATION
  Report Type: Spontaneous
  Country: SK (occurrence: SK)
  Receive Date: 20240429
  Receipt Date: 20240429
  Transmission Date: 20240716
  Serious: Yes (Other)
  Sender: FDA-Public Use
  Company Number: SK-AMGEN-SVKSP2024081173

PATIENT
  Age: 67 Year
  Sex: Female

DRUGS (4)
  1. APREMILAST [Suspect]
     Active Substance: APREMILAST
     Indication: Palmoplantar pustulosis
     Dosage: UNK
     Route: 065
     Dates: start: 20230711
  2. LEVOTHYROXINE [Concomitant]
     Active Substance: LEVOTHYROXINE\LEVOTHYROXINE SODIUM
  3. ERYTHROMYCIN [Concomitant]
     Active Substance: ERYTHROMYCIN
  4. DIETARY SUPPLEMENT\HERBALS\MILK THISTLE [Concomitant]
     Active Substance: MILK THISTLE

REACTIONS (9)
  - Citrobacter infection [Unknown]
  - Renal hamartoma [Unknown]
  - Diabetic metabolic decompensation [Unknown]
  - Peripheral arterial occlusive disease [Unknown]
  - COVID-19 [Unknown]
  - Adverse event [Unknown]
  - Psoriasis [Unknown]
  - Osteoarthritis [Unknown]
  - Urinary tract infection [Unknown]

NARRATIVE: CASE EVENT DATE: 20231201
